FAERS Safety Report 12273831 (Version 1)
Quarter: 2016Q2

REPORT INFORMATION
  Report Type: Report from Study
  Country: CN (occurrence: CN)
  Receive Date: 20160415
  Receipt Date: 20160415
  Transmission Date: 20160815
  Serious: Yes (Life-Threatening)
  Sender: FDA-Public Use
  Company Number: CN-ASTRAZENECA-2016SE39967

PATIENT
  Age: 23152 Day
  Sex: Female

DRUGS (16)
  1. IPRATROPINE BROMIDE AND [Concomitant]
     Indication: ASTHMA
     Route: 055
     Dates: start: 20151215, end: 20151224
  2. ESOMEPRAZOLE SODIUM. [Suspect]
     Active Substance: ESOMEPRAZOLE SODIUM
     Indication: STRESS ULCER
     Route: 041
     Dates: start: 20151215, end: 20151229
  3. CITICOLINE SODIUM [Concomitant]
     Active Substance: CITICOLINE SODIUM
     Indication: NERVE INJURY
     Route: 042
     Dates: start: 20151215, end: 20151222
  4. CREATINE PHOSPHATE [Concomitant]
     Indication: CARDIOMYOPATHY
     Route: 042
     Dates: start: 20151215
  5. DIISOPROPYLAMINE DICHLOROACETATE [Concomitant]
     Indication: LIVER DISORDER
     Route: 042
     Dates: start: 20151217, end: 20151226
  6. ASPIRIN. [Concomitant]
     Active Substance: ASPIRIN
     Indication: MYOCARDIAL INFARCTION
     Route: 048
     Dates: start: 20151217, end: 20151228
  7. DOXOFYLLINE [Concomitant]
     Active Substance: DOXOFYLLINE
     Indication: ASTHMA
     Route: 042
     Dates: start: 20151215, end: 20151222
  8. IPRATROPINE BROMIDE AND [Concomitant]
     Indication: BRONCHOSPASM
     Route: 055
     Dates: start: 20151215, end: 20151224
  9. IRON [Concomitant]
     Active Substance: IRON
     Indication: ANAEMIA
     Route: 042
     Dates: start: 20151215, end: 20151222
  10. DOXOFYLLINE [Concomitant]
     Active Substance: DOXOFYLLINE
     Indication: BRONCHOSPASM
     Route: 042
     Dates: start: 20151215, end: 20151222
  11. MEROPENEM. [Concomitant]
     Active Substance: MEROPENEM
     Indication: LUNG INFECTION
     Route: 042
     Dates: start: 20151215, end: 20151222
  12. FLUCONAZOLE. [Concomitant]
     Active Substance: FLUCONAZOLE
     Indication: LUNG INFECTION
     Route: 042
     Dates: start: 20151217, end: 20151224
  13. CLOPIDOGREL SULFATE [Concomitant]
     Active Substance: CLOPIDOGREL BISULFATE
     Indication: MYOCARDIAL INFARCTION
     Route: 048
     Dates: start: 20151217, end: 20151228
  14. POTASSIUM  MAGNESIUM ASPARTATE [Concomitant]
     Indication: CARDIOMYOPATHY
     Route: 042
     Dates: start: 20151215
  15. AMBROXOL [Concomitant]
     Active Substance: AMBROXOL
     Indication: BRONCHOSPASM
     Route: 042
     Dates: start: 20151215, end: 20151224
  16. AMBROXOL [Concomitant]
     Active Substance: AMBROXOL
     Indication: ASTHMA
     Route: 042
     Dates: start: 20151215, end: 20151224

REACTIONS (1)
  - Hypercapnia [Recovered/Resolved]

NARRATIVE: CASE EVENT DATE: 20151224
